FAERS Safety Report 7010846-1 (Version None)
Quarter: 2010Q3

REPORT INFORMATION
  Report Type: 
  Country: None (occurrence: None)
  Receive Date: 20100923
  Receipt Date: 20100923
  Transmission Date: 20110219
  Serious: Yes (Hospitalization)
  Sender: FDA-Public Use
  Company Number: None

PATIENT
  Age: 59 Year
  Sex: Male
  Weight: 84.3 kg

DRUGS (21)
  1. BEVACIZUMAB [Suspect]
     Indication: OESOPHAGEAL CANCER METASTATIC
     Dosage: 10MG/KG Q 3 WEEKS
     Route: 003
     Dates: start: 20100618, end: 20100827
  2. CISPLATIN [Suspect]
     Indication: OESOPHAGEAL CANCER METASTATIC
     Dosage: 30MG/M2 D1D8QCYC
     Dates: start: 20100618, end: 20100903
  3. IRINOTECAN HCL [Suspect]
     Indication: OESOPHAGEAL CANCER METASTATIC
     Dosage: 65MG/M2 D1D8QCYC
     Dates: start: 20100618, end: 20100903
  4. AMLODIPINE [Concomitant]
  5. ATENOLOL [Concomitant]
  6. BACLOFEN [Concomitant]
  7. PROCHLORPERAZINE MALEATE [Concomitant]
  8. DIPHENOXYLATE W/ATROPINE GTUBE [Concomitant]
  9. KETOCONAZOLE GEL [Concomitant]
  10. INSULIN GLARGINE [Concomitant]
  11. LISINOPRIL [Concomitant]
  12. LORAZEPAM [Concomitant]
  13. MAALOX/DIPHENHYDRAMINE/LIDOCAINE MOUTHWASH [Concomitant]
  14. INSULIN ASPART [Concomitant]
  15. OMEPRAZOLE [Concomitant]
  16. OPIUM TINCTURE DEODORIZED [Concomitant]
  17. METFORMIN [Concomitant]
  18. TYLENOL (CAPLET) [Concomitant]
  19. HYDROCHLOROTHIAZIDE [Concomitant]
  20. LABETALOL HCL [Concomitant]
  21. COMPAZINE [Concomitant]

REACTIONS (4)
  - EPISTAXIS [None]
  - HEADACHE [None]
  - HYPERTENSION [None]
  - MALIGNANT NEOPLASM PROGRESSION [None]
